FAERS Safety Report 8812811 (Version 1)
Quarter: 2012Q4

REPORT INFORMATION
  Report Type: 
  Country: US (occurrence: US)
  Receive Date: 20120927
  Receipt Date: 20120927
  Transmission Date: 20130627
  Serious: Yes (Other)
  Sender: FDA-Public Use
  Company Number: US-AMGEN-USASP2012034409

PATIENT
  Age: 51 Year
  Sex: Female
  Weight: 64.9 kg

DRUGS (4)
  1. XGEVA [Suspect]
     Indication: METASTASES TO BONE
     Dosage: 120 mg, q4wk
     Route: 058
     Dates: start: 20120528, end: 20120628
  2. CRIZOTINIB [Concomitant]
     Indication: LUNG NEOPLASM MALIGNANT
     Dosage: 250 mg, bid
     Route: 048
     Dates: start: 20120613
  3. PEMETREXED [Concomitant]
     Indication: LUNG NEOPLASM MALIGNANT
     Dosage: 900 mg, one time dose
     Route: 042
     Dates: start: 20120528, end: 20120613
  4. CISPLATIN [Concomitant]
     Indication: LUNG NEOPLASM MALIGNANT
     Dosage: 135 mg, one time dose
     Route: 042
     Dates: start: 20120528, end: 20120613

REACTIONS (1)
  - Hypocalcaemia [Recovered/Resolved]
